FAERS Safety Report 8889200 (Version 2)
Quarter: 2013Q3

REPORT INFORMATION
  Report Type: Spontaneous
  Country: CA (occurrence: CA)
  Receive Date: 20121106
  Receipt Date: 20130711
  Transmission Date: 20140515
  Serious: Yes (Life-Threatening, Hospitalization, Other)
  Sender: FDA-Public Use
  Company Number: CA-CELGENEUS-028-21880-12103849

PATIENT
  Age: 78 Year
  Sex: Female

DRUGS (4)
  1. REVLIMID [Suspect]
     Indication: MYELODYSPLASTIC SYNDROME
     Dosage: 25 MILLIGRAM
     Route: 048
     Dates: start: 20101029
  2. ANCEF [Suspect]
     Indication: PRODUCT USED FOR UNKNOWN INDICATION
     Route: 065
     Dates: start: 20101104, end: 20101105
  3. TOBI [Suspect]
     Indication: FEBRILE NEUTROPENIA
     Route: 058
     Dates: start: 20101104, end: 20101105
  4. VELCADE [Concomitant]
     Indication: PRODUCT USED FOR UNKNOWN INDICATION
     Route: 041
     Dates: end: 201008

REACTIONS (6)
  - Exfoliative rash [Recovered/Resolved]
  - Febrile neutropenia [Recovered/Resolved]
  - Immunodeficiency [Unknown]
  - Angioedema [Recovered/Resolved]
  - Hypotension [Unknown]
  - Neuropathy peripheral [Unknown]
